FAERS Safety Report 23831671 (Version 4)
Quarter: 2024Q3

REPORT INFORMATION
  Report Type: Spontaneous
  Country: US (occurrence: US)
  Receive Date: 20240508
  Receipt Date: 20240925
  Transmission Date: 20241017
  Serious: No
  Sender: PFIZER
  Company Number: US-PFIZER INC-202400098863

PATIENT
  Age: 12 Year
  Sex: Male

DRUGS (3)
  1. GENOTROPIN [Suspect]
     Active Substance: SOMATROPIN
     Indication: Growth hormone deficiency
     Dosage: 2.5 MILLIGRAMS, (NEEDS TO ALTERNATE IT TO 2.4 AND THEN TO 2.6)
  2. GENOTROPIN [Suspect]
     Active Substance: SOMATROPIN
     Dosage: 2.4MG ALTERNATED WITH 2.6MG 7 DAYS PER WEEK
  3. GENOTROPIN [Suspect]
     Active Substance: SOMATROPIN
     Dosage: 2.6 MG, ALTERNATE DAY (2.4MG ALTERNATED WITH 2.6MG 7 DAYS PER WEEK)

REACTIONS (2)
  - Product prescribing error [Unknown]
  - Device breakage [Unknown]

NARRATIVE: CASE EVENT DATE: 20240501
